FAERS Safety Report 25269753 (Version 1)
Quarter: 2025Q2

REPORT INFORMATION
  Report Type: Spontaneous
  Country: IN (occurrence: IN)
  Receive Date: 20250505
  Receipt Date: 20250505
  Transmission Date: 20250716
  Serious: Yes (Hospitalization)
  Sender: BAUSCH AND LOMB
  Company Number: IN-BAUSCH-BL-2025-005536

PATIENT
  Sex: Female

DRUGS (18)
  1. DILTIAZEM [Suspect]
     Active Substance: DILTIAZEM
     Indication: Atrial fibrillation
     Route: 065
     Dates: start: 202101, end: 2021
  2. DILTIAZEM [Suspect]
     Active Substance: DILTIAZEM
     Indication: Sinus node dysfunction
     Route: 065
     Dates: start: 202211
  3. DILTIAZEM [Suspect]
     Active Substance: DILTIAZEM
     Route: 065
     Dates: start: 202305, end: 202310
  4. DABIGATRAN [Concomitant]
     Active Substance: DABIGATRAN
     Indication: Atrial fibrillation
     Dates: start: 2021
  5. DABIGATRAN [Concomitant]
     Active Substance: DABIGATRAN
     Indication: Sinus node dysfunction
  6. BROMOCRIPTINE [Concomitant]
     Active Substance: BROMOCRIPTINE
     Indication: Neuroleptic malignant syndrome
     Route: 048
     Dates: start: 202310
  7. METOPROLOL [Concomitant]
     Active Substance: METOPROLOL
     Indication: Atrial fibrillation
     Dates: start: 2021
  8. METOPROLOL [Concomitant]
     Active Substance: METOPROLOL
     Indication: Sinus node dysfunction
  9. RISPERIDONE [Concomitant]
     Active Substance: RISPERIDONE
     Indication: Psychotic disorder
     Dates: start: 202308, end: 202309
  10. QUETIAPINE [Concomitant]
     Active Substance: QUETIAPINE
     Indication: Psychotic disorder
     Dates: start: 202308, end: 202309
  11. PROMETHAZINE [Concomitant]
     Active Substance: PROMETHAZINE HYDROCHLORIDE
     Indication: Psychotic disorder
     Dates: start: 202308, end: 202309
  12. AMISULPRIDE [Concomitant]
     Active Substance: AMISULPRIDE
     Indication: Psychotic disorder
     Dates: start: 202309, end: 202309
  13. NORFLOXACIN;TINIDAZOLE [Concomitant]
     Indication: Product used for unknown indication
  14. ZOLPIDEM [Concomitant]
     Active Substance: ZOLPIDEM TARTRATE
     Indication: Product used for unknown indication
     Dates: start: 202211
  15. CARBIDOPA\LEVODOPA [Concomitant]
     Active Substance: CARBIDOPA\LEVODOPA
     Indication: Psychomotor hyperactivity
     Dates: start: 2023
  16. CARBIDOPA\LEVODOPA [Concomitant]
     Active Substance: CARBIDOPA\LEVODOPA
     Indication: Disorganised speech
  17. OLANZAPINE [Concomitant]
     Active Substance: OLANZAPINE
     Indication: Psychomotor hyperactivity
     Dates: start: 2023
  18. OLANZAPINE [Concomitant]
     Active Substance: OLANZAPINE
     Indication: Disorganised speech

REACTIONS (1)
  - Delirium [Recovered/Resolved]

NARRATIVE: CASE EVENT DATE: 20210101
